FAERS Safety Report 23798198 (Version 8)
Quarter: 2024Q4

REPORT INFORMATION
  Report Type: Spontaneous
  Country: US (occurrence: US)
  Receive Date: 20240430
  Receipt Date: 20241009
  Transmission Date: 20250114
  Serious: No
  Sender: PFIZER
  Company Number: US-PFIZER INC-202400094960

PATIENT
  Age: 13 Year
  Sex: Male

DRUGS (3)
  1. GENOTROPIN [Suspect]
     Active Substance: SOMATROPIN
     Indication: Noonan syndrome
     Dosage: 1.2MG DAILY
  2. GENOTROPIN [Suspect]
     Active Substance: SOMATROPIN
     Dosage: 1.2MG ALTERNATING WITH 1.4MG
  3. GENOTROPIN [Suspect]
     Active Substance: SOMATROPIN
     Dosage: 1.2MG ALTERNATING WITH 1.4MG

REACTIONS (7)
  - Device physical property issue [Unknown]
  - Device mechanical issue [Unknown]
  - Device difficult to use [Unknown]
  - Poor quality device used [Unknown]
  - Device breakage [Unknown]
  - Drug dose omission by device [Unknown]
  - Off label use [Unknown]
